FAERS Safety Report 5862432-4 (Version None)
Quarter: 2008Q3

REPORT INFORMATION
  Report Type: 
  Country: None (occurrence: None)
  Receive Date: 20080827
  Receipt Date: 20080827
  Transmission Date: 20090109
  Serious: Yes (Hospitalization)
  Sender: FDA-Public Use
  Company Number: None

PATIENT
  Age: 67 Year
  Sex: Female
  Weight: 87.9978 kg

DRUGS (3)
  1. ELOXATIN [Suspect]
  2. LEUCOVORIN [Suspect]
  3. FLUOROURACIL [Suspect]

REACTIONS (1)
  - CELLULITIS [None]
